FAERS Safety Report 9440839 (Version 2)
Quarter: 2013Q3

REPORT INFORMATION
  Report Type: Spontaneous
  Country: US (occurrence: None)
  Receive Date: 20130801
  Receipt Date: 20130814
  Transmission Date: 20140515
  Serious: Yes (Other)
  Sender: FDA-Public Use
  Company Number: 2013P1013236

PATIENT
  Age: 56 Year
  Sex: Male

DRUGS (4)
  1. INFUMORPH [Suspect]
     Indication: PAIN
  2. INFUMORPH [Suspect]
     Indication: BACK PAIN
  3. FENTANYL [Suspect]
     Indication: PAIN
  4. FENTANYL [Suspect]
     Indication: BACK PAIN

REACTIONS (3)
  - Device malfunction [None]
  - Pain [None]
  - Device infusion issue [None]
